FAERS Safety Report 7508376-3 (Version None)
Quarter: 2011Q2

REPORT INFORMATION
  Report Type: 
  Country: None (occurrence: None)
  Receive Date: 20110527
  Receipt Date: 20110523
  Transmission Date: 20111010
  Serious: Yes (Other)
  Sender: FDA-Public Use
  Company Number: GB-PFIZER INC-2011111184

PATIENT
  Age: 70 Year
  Sex: Male

DRUGS (5)
  1. LIPITOR [Suspect]
     Dosage: 40 MG, UNK
     Dates: start: 20110301
  2. ACETYLSALICYLIC ACID [Concomitant]
     Dosage: 75 MG, DAILY
  3. PREDNISOLONE [Concomitant]
     Indication: ARTHRITIS
     Dosage: 1 MG, UNK
  4. DIOVAN [Concomitant]
     Dosage: 160 MG, DAILY
  5. LANSOPRAZOLE [Concomitant]
     Dosage: 15 MG, DAILY

REACTIONS (7)
  - FLATULENCE [None]
  - ARTHROPATHY [None]
  - BONE PAIN [None]
  - RASH PRURITIC [None]
  - ARTHRALGIA [None]
  - FATIGUE [None]
  - INFLUENZA [None]
